FAERS Safety Report 7828572-5 (Version None)
Quarter: 2011Q4

REPORT INFORMATION
  Report Type: 
  Country: None (occurrence: None)
  Receive Date: 20111020
  Receipt Date: 20111020
  Transmission Date: 20120403
  Serious: Yes (Hospitalization)
  Sender: FDA-Public Use
  Company Number: None

PATIENT
  Sex: Female

DRUGS (5)
  1. LATANOPROST [Concomitant]
  2. PROCRIT [Suspect]
     Indication: NEPHROGENIC ANAEMIA
     Dosage: 4,000 UNITS
     Route: 058
     Dates: start: 20110808, end: 20111017
  3. LISINOPRIL [Concomitant]
     Indication: ANAEMIA OF CHRONIC DISEASE
  4. FEMARA [Concomitant]
  5. AZOPT [Concomitant]

REACTIONS (1)
  - PULMONARY EMBOLISM [None]
